FAERS Safety Report 23511672 (Version 1)
Quarter: 2024Q1

REPORT INFORMATION
  Report Type: Spontaneous
  Country: US (occurrence: US)
  Receive Date: 20240212
  Receipt Date: 20240212
  Transmission Date: 20240410
  Serious: No
  Sender: FDA-Public Use
  Company Number: US-COHERUS BIOSCIENCES, Inc.-2024-COH-US000014

PATIENT

DRUGS (12)
  1. CIMERLI [Suspect]
     Active Substance: RANIBIZUMAB-EQRN
     Indication: Diabetes mellitus
     Dosage: 0.3 MG
     Dates: start: 20230531
  2. CIMERLI [Suspect]
     Active Substance: RANIBIZUMAB-EQRN
     Dosage: 0.3 MG
     Dates: start: 20230726
  3. CIMERLI [Suspect]
     Active Substance: RANIBIZUMAB-EQRN
     Dosage: 0.3 MG
     Dates: start: 20230920
  4. CIMERLI [Suspect]
     Active Substance: RANIBIZUMAB-EQRN
     Dosage: 0.3 MG
     Dates: start: 20231117
  5. AMLODIPINE [Concomitant]
     Active Substance: AMLODIPINE BESYLATE
     Dosage: 10 MG
  6. ATORVASTATIN [Concomitant]
     Active Substance: ATORVASTATIN
     Dosage: 40 MG
  7. FARXIGA [Concomitant]
     Active Substance: DAPAGLIFLOZIN PROPANEDIOL
     Dosage: 10 MG
  8. HYDROCHLOROTHIAZIDE [Concomitant]
     Active Substance: HYDROCHLOROTHIAZIDE
     Dosage: 25 MG
  9. LOSARTAN [Concomitant]
     Active Substance: LOSARTAN
     Dosage: 100 MG
  10. METFORMIN [Concomitant]
     Active Substance: METFORMIN HYDROCHLORIDE
     Dosage: 500 MG
  11. INSULIN NOS [Concomitant]
     Active Substance: INSULIN NOS
     Dosage: 300 UNITS, BID
  12. OZEMPIC [Concomitant]
     Active Substance: SEMAGLUTIDE
     Dosage: UNK, 1/WEEK

REACTIONS (2)
  - Product dose omission issue [Not Recovered/Not Resolved]
  - Off label use [Unknown]

NARRATIVE: CASE EVENT DATE: 20231117
